FAERS Safety Report 23970326 (Version 1)
Quarter: 2024Q2

REPORT INFORMATION
  Report Type: Spontaneous
  Country: US (occurrence: US)
  Receive Date: 20240613
  Receipt Date: 20240613
  Transmission Date: 20240715
  Serious: Yes (Hospitalization, Other)
  Sender: FDA-Public Use
  Company Number: US-009507513-2406USA003454

PATIENT
  Age: 65 Year
  Sex: Male

DRUGS (1)
  1. KEYTRUDA [Suspect]
     Active Substance: PEMBROLIZUMAB
     Indication: Oropharyngeal squamous cell carcinoma
     Dosage: 20 CYCLES, THE LAST DOSE WAS ADMINISTERED 10 DAYS BEFORE THE FIRST EMERGENCY DEPARTMENT (ED) VISIT

REACTIONS (1)
  - Immune-mediated adrenal insufficiency [Unknown]
